FAERS Safety Report 6577828-5 (Version None)
Quarter: 2010Q1

REPORT INFORMATION
  Report Type: 
  Country: None (occurrence: None)
  Receive Date: 20100211
  Receipt Date: 20100204
  Transmission Date: 20100710
  Serious: Yes (Other)
  Sender: FDA-Public Use
  Company Number: NL-ROCHE-683981

PATIENT
  Sex: Female

DRUGS (6)
  1. XELODA [Suspect]
     Route: 048
     Dates: start: 20040101
  2. XELODA [Suspect]
     Dosage: SIX COURSES
     Route: 048
  3. AVASTIN [Suspect]
     Dosage: THREE COURSES
     Route: 042
     Dates: start: 20040101
  4. AVASTIN [Suspect]
     Dosage: FIVE COURSES
     Route: 042
  5. OXALIPLATIN [Suspect]
     Route: 042
     Dates: start: 20040101
  6. OXALIPLATIN [Suspect]
     Dosage: SIX COURSES
     Route: 042

REACTIONS (1)
  - DISEASE PROGRESSION [None]
